FAERS Safety Report 13941433 (Version 1)
Quarter: 2017Q3

REPORT INFORMATION
  Report Type: Spontaneous
  Country: US (occurrence: None)
  Receive Date: 20170906
  Receipt Date: 20170906
  Transmission Date: 20171127
  Serious: Yes (Hospitalization)
  Sender: FDA-Public Use
  Company Number: None

PATIENT
  Age: 96 Year
  Sex: Male

DRUGS (19)
  1. FUROSEMIDE. [Concomitant]
     Active Substance: FUROSEMIDE
  2. VITAMIN B12 [Concomitant]
     Active Substance: CYANOCOBALAMIN
  3. METRONDAZOL [Concomitant]
  4. CALTRATE+D [Concomitant]
  5. BLUMETANDE [Concomitant]
  6. BENZONATATE. [Concomitant]
     Active Substance: BENZONATATE
  7. MYRBETRIQ [Concomitant]
     Active Substance: MIRABEGRON
  8. FUROSEMDE [Concomitant]
  9. ZYTIGA [Concomitant]
     Active Substance: ABIRATERONE ACETATE
  10. ZOLPIDEM [Concomitant]
     Active Substance: ZOLPIDEM\ZOLPIDEM TARTRATE
  11. ELIQUIS [Concomitant]
     Active Substance: APIXABAN
  12. TORSEMIDE. [Concomitant]
     Active Substance: TORSEMIDE
  13. LOSARTAN POT [Concomitant]
     Active Substance: LOSARTAN POTASSIUM
  14. CIPROFLOXACN [Concomitant]
     Active Substance: CIPROFLOXACIN
  15. METOPROL TAR [Concomitant]
  16. PREDNISONE. [Concomitant]
     Active Substance: PREDNISONE
  17. LOSARTAN POT [Concomitant]
     Active Substance: LOSARTAN POTASSIUM
  18. ATORVASTATIN [Concomitant]
     Active Substance: ATORVASTATIN
  19. ZYTIGA [Suspect]
     Active Substance: ABIRATERONE ACETATE
     Indication: PROSTATE CANCER
     Dosage: 4 TABLETS DAILY ORAL
     Route: 048
     Dates: start: 20170225

REACTIONS (1)
  - Therapy cessation [None]
